FAERS Safety Report 9376749 (Version 3)
Quarter: 2013Q4

REPORT INFORMATION
  Report Type: Report from Study
  Country: PL (occurrence: PL)
  Receive Date: 20130701
  Receipt Date: 20131001
  Transmission Date: 20140711
  Serious: Yes (Hospitalization, Other)
  Sender: FDA-Public Use
  Company Number: PL-BIOGENIDEC-2013BI057018

PATIENT
  Age: 36 Year
  Sex: Female
  Weight: 57 kg

DRUGS (1)
  1. BG00012 [Suspect]
     Indication: MULTIPLE SCLEROSIS
     Dates: start: 20101218, end: 20130620

REACTIONS (1)
  - Breast cancer [Not Recovered/Not Resolved]
